FAERS Safety Report 8065255-3 (Version None)
Quarter: 2012Q1

REPORT INFORMATION
  Report Type: 
  Country: None (occurrence: None)
  Receive Date: 20120117
  Receipt Date: 20120104
  Transmission Date: 20120608
  Serious: Yes (Other)
  Sender: FDA-Public Use
  Company Number: ACO_28837_2012

PATIENT
  Age: 46 Year
  Sex: Male

DRUGS (3)
  1. TIZANIDINE HYDROCHLORIDE [Suspect]
     Indication: SPINAL CORD DISORDER
     Dosage: 2 MG
  2. SOTALOL HYDROCHLORIDE [Concomitant]
  3. KETOPROFEN [Concomitant]

REACTIONS (2)
  - ARRHYTHMIA [None]
  - CONDITION AGGRAVATED [None]
